FAERS Safety Report 5953540-8 (Version None)
Quarter: 2008Q4

REPORT INFORMATION
  Report Type: 
  Country: None (occurrence: None)
  Receive Date: 20081114
  Receipt Date: 20081107
  Transmission Date: 20090506
  Serious: Yes (Life-Threatening)
  Sender: FDA-Public Use
  Company Number: JP-ASTRAZENECA-2008AP08777

PATIENT
  Age: 17947 Day
  Sex: Female

DRUGS (12)
  1. SEROQUEL [Suspect]
     Indication: DEPRESSION
     Route: 048
     Dates: end: 20080401
  2. SEROQUEL [Suspect]
     Route: 048
     Dates: start: 20080401, end: 20080910
  3. LEXOTAN [Suspect]
     Indication: DEPRESSION
     Route: 048
     Dates: end: 20080910
  4. ZOLOFT [Suspect]
     Indication: DEPRESSION
     Route: 048
     Dates: end: 20080910
  5. SOLANAX [Suspect]
     Indication: DEPRESSION
     Route: 048
     Dates: end: 20080910
  6. ANAFRANIL [Suspect]
     Indication: DEPRESSION
     Route: 048
     Dates: end: 20080910
  7. AMOXAPINE [Suspect]
     Indication: DEPRESSION
     Route: 048
     Dates: end: 20080910
  8. LUDIOMIL [Suspect]
     Indication: DEPRESSION
     Route: 048
     Dates: end: 20080910
  9. LEVOTOMIN [Suspect]
     Indication: DEPRESSION
     Route: 048
     Dates: end: 20080910
  10. MYSLEE [Suspect]
     Indication: DEPRESSION
     Route: 048
     Dates: end: 20080910
  11. EVAMYL [Suspect]
     Indication: DEPRESSION
     Route: 048
     Dates: end: 20080910
  12. ROHYPNOL [Suspect]
     Indication: DEPRESSION
     Route: 048
     Dates: end: 20080910

REACTIONS (4)
  - DIABETIC KETOACIDOSIS [None]
  - NEUROLEPTIC MALIGNANT SYNDROME [None]
  - PANCREATITIS ACUTE [None]
  - RENAL FAILURE ACUTE [None]
